FAERS Safety Report 4534836-3 (Version None)
Quarter: 2004Q4

REPORT INFORMATION
  Report Type: 
  Country: None (occurrence: None)
  Receive Date: 20041222
  Receipt Date: 20040421
  Transmission Date: 20050328
  Serious: No
  Sender: FDA-Public Use
  Company Number: US-BRISTOL-MYERS SQUIBB COMPANY-12566808

PATIENT
  Age: 84 Year
  Sex: Female
  Weight: 73 kg

DRUGS (4)
  1. PRAVACHOL [Suspect]
     Route: 048
  2. CARDIZEM [Concomitant]
  3. LEVOXYL [Concomitant]
  4. ASPIRIN [Concomitant]

REACTIONS (3)
  - DIZZINESS [None]
  - HEADACHE [None]
  - PALPITATIONS [None]
